FAERS Safety Report 5254766-1 (Version None)
Quarter: 2007Q1

REPORT INFORMATION
  Report Type: 
  Country: None (occurrence: None)
  Receive Date: 20070305
  Receipt Date: 20070226
  Transmission Date: 20070707
  Serious: Yes (Other)
  Sender: FDA-Public Use
  Company Number: FR-JNJFOC-20070105045

PATIENT
  Age: 38 Year
  Sex: Female

DRUGS (11)
  1. REMICADE [Suspect]
     Route: 042
  2. REMICADE [Suspect]
     Route: 042
  3. REMICADE [Suspect]
     Route: 042
  4. REMICADE [Suspect]
     Route: 042
  5. REMICADE [Suspect]
     Indication: RHEUMATOID ARTHRITIS
     Route: 042
  6. NOVATREX [Concomitant]
     Indication: RHEUMATOID ARTHRITIS
     Route: 065
  7. KETOPROFEN [Concomitant]
     Route: 065
  8. CORTANCYL [Concomitant]
     Route: 048
  9. LANSOPRAZOLE [Concomitant]
     Route: 048
  10. LEXOMYL [Concomitant]
     Route: 048
  11. CALCIUM WITH VITAMIN D [Concomitant]
     Route: 048

REACTIONS (4)
  - ANTINUCLEAR ANTIBODY POSITIVE [None]
  - NEUTROPHIL COUNT INCREASED [None]
  - PUSTULAR PSORIASIS [None]
  - WHITE BLOOD CELL COUNT INCREASED [None]
